FAERS Safety Report 5204738-8 (Version None)
Quarter: 2007Q1

REPORT INFORMATION
  Report Type: 
  Country: None (occurrence: None)
  Receive Date: 20070110
  Receipt Date: 20060630
  Transmission Date: 20070707
  Serious: No
  Sender: FDA-Public Use
  Company Number: US-BRISTOL-MYERS SQUIBB COMPANY-13430574

PATIENT
  Age: 46 Year
  Sex: Female
  Weight: 75 kg

DRUGS (5)
  1. ABILIFY [Suspect]
  2. COPAXONE [Concomitant]
     Route: 058
  3. ZOLPIDEM TARTRATE [Concomitant]
  4. IBUPROFEN [Concomitant]
  5. TRAZODONE HCL [Concomitant]
     Dosage: DOSE VALUE: 50-100 MG

REACTIONS (1)
  - DRUG SCREEN POSITIVE [None]
